FAERS Safety Report 7650023-4 (Version None)
Quarter: 2011Q3

REPORT INFORMATION
  Report Type: 
  Country: None (occurrence: None)
  Receive Date: 20110802
  Receipt Date: 20110719
  Transmission Date: 20111222
  Serious: Yes (Other)
  Sender: FDA-Public Use
  Company Number: US-ELI_LILLY_AND_COMPANY-US201106004656

PATIENT
  Sex: Female

DRUGS (2)
  1. FORTEO [Suspect]
     Indication: OSTEOPOROSIS
     Dosage: UNK, UNKNOWN
     Route: 065
     Dates: start: 20110501
  2. FORTEO [Suspect]
     Dosage: UNK

REACTIONS (6)
  - WHITE BLOOD CELL COUNT DECREASED [None]
  - LOSS OF CONSCIOUSNESS [None]
  - LETHARGY [None]
  - SLEEP DISORDER [None]
  - BLOOD PRESSURE DECREASED [None]
  - WEIGHT DECREASED [None]
